FAERS Safety Report 20679619 (Version 1)
Quarter: 2022Q2

REPORT INFORMATION
  Report Type: Other
  Country: US (occurrence: US)
  Receive Date: 20220406
  Receipt Date: 20220406
  Transmission Date: 20220721
  Serious: Yes (Other)
  Sender: FDA-Public Use
  Company Number: US-ACORDA-ACO_172117_2022

PATIENT
  Sex: Male

DRUGS (1)
  1. AMPYRA [Suspect]
     Active Substance: DALFAMPRIDINE
     Indication: Product used for unknown indication
     Dosage: 10 MILLIGRAM, Q 12 HRS
     Route: 048

REACTIONS (7)
  - Paralysis [Unknown]
  - Hypoaesthesia [Unknown]
  - Neurogenic bladder [Unknown]
  - Eye disorder [Unknown]
  - Tremor [Unknown]
  - Therapy interrupted [Unknown]
  - Paraesthesia [Unknown]
